FAERS Safety Report 10160742 (Version 2)
Quarter: 2014Q2

REPORT INFORMATION
  Report Type: Spontaneous
  Country: JP (occurrence: JP)
  Receive Date: 20140508
  Receipt Date: 20140603
  Transmission Date: 20141212
  Serious: Yes (Death)
  Sender: FDA-Public Use
  Company Number: JP-BAXTER-2014BAX022066

PATIENT
  Sex: Male

DRUGS (3)
  1. DIANEAL-N PD-4 1.5 PD SOLUTION [Suspect]
     Indication: RENAL FAILURE CHRONIC
     Route: 033
     Dates: start: 20120424, end: 20140404
  2. DIANEAL-N PD-4 1.5 PD SOLUTION [Suspect]
     Indication: PERITONEAL LAVAGE
     Route: 033
  3. EXTRANEAL PD SOLUTION [Suspect]
     Indication: RENAL FAILURE CHRONIC
     Route: 033
     Dates: start: 20120424, end: 20140404

REACTIONS (2)
  - Sepsis [Fatal]
  - Gastrointestinal necrosis [Fatal]
